FAERS Safety Report 21096594 (Version 1)
Quarter: 2022Q3

REPORT INFORMATION
  Report Type: Spontaneous
  Country: AT (occurrence: AT)
  Receive Date: 20220718
  Receipt Date: 20220718
  Transmission Date: 20221026
  Serious: Yes (Hospitalization, Other)
  Sender: FDA-Public Use
  Company Number: AT-GILEAD-2022-0581196

PATIENT
  Sex: Female

DRUGS (12)
  1. TRODELVY [Suspect]
     Active Substance: SACITUZUMAB GOVITECAN-HZIY
     Indication: Breast cancer
     Dosage: DOSE REDUCED 85% C1D1 AND C1D8
     Route: 065
     Dates: start: 20220421, end: 20220428
  2. TRODELVY [Suspect]
     Active Substance: SACITUZUMAB GOVITECAN-HZIY
     Dosage: DOSE REDUCED 85% C2D1
     Route: 065
     Dates: start: 20220603, end: 20220603
  3. TRODELVY [Suspect]
     Active Substance: SACITUZUMAB GOVITECAN-HZIY
     Dosage: DOSE ESCALATION TO 100% C3D1 AND C3D8
     Route: 065
     Dates: start: 20220624
  4. ACETAMINOPHEN [Concomitant]
     Active Substance: ACETAMINOPHEN
     Dosage: UNK
     Dates: start: 20220421
  5. DIPHENHYDRAMINE [Concomitant]
     Active Substance: DIPHENHYDRAMINE
     Dosage: UNK
     Dates: start: 20220421
  6. FAMOTIDINE [Concomitant]
     Active Substance: FAMOTIDINE
     Dosage: UNK
     Dates: start: 20220421
  7. DEXAMETHASONE [Concomitant]
     Active Substance: DEXAMETHASONE
     Dosage: UNK
     Dates: start: 20220421
  8. NETUPITANT\PALONOSETRON [Concomitant]
     Active Substance: NETUPITANT\PALONOSETRON
     Dosage: UNK
     Dates: start: 20220421
  9. OLANZAPINE [Concomitant]
     Active Substance: OLANZAPINE
     Dosage: UNK
     Dates: end: 20220421
  10. DESLORATADINE [Concomitant]
     Active Substance: DESLORATADINE
  11. LOPERAMIDE [Concomitant]
     Active Substance: LOPERAMIDE
  12. FILGRASTIM [Concomitant]
     Active Substance: FILGRASTIM

REACTIONS (12)
  - Escherichia urinary tract infection [Unknown]
  - Acute kidney injury [Recovering/Resolving]
  - Dehydration [Recovering/Resolving]
  - Diarrhoea [Recovered/Resolved]
  - Diarrhoea [Recovering/Resolving]
  - Neutropenia [Recovered/Resolved]
  - Infection [Not Recovered/Not Resolved]
  - Bone pain [Unknown]
  - Folliculitis [Recovering/Resolving]
  - Abdominal pain [Unknown]
  - Diarrhoea [Recovered/Resolved]
  - Off label use [Recovered/Resolved]

NARRATIVE: CASE EVENT DATE: 20220401
